FAERS Safety Report 9358757 (Version 1)
Quarter: 2013Q2

REPORT INFORMATION
  Report Type: Spontaneous
  Country: IN (occurrence: IN)
  Receive Date: 20130620
  Receipt Date: 20130620
  Transmission Date: 20140414
  Serious: Yes (Hospitalization)
  Sender: FDA-Public Use
  Company Number: PHHY2013IN061072

PATIENT
  Age: 55 Year
  Sex: Female

DRUGS (10)
  1. VINCRISTINE [Suspect]
     Indication: LYMPHOMA
  2. DEXAMETHASONE [Suspect]
     Dosage: 16 MG, QD
  3. PREDNISOLONE [Suspect]
     Indication: LYMPHOMA
     Dosage: 40 MG, QD
     Route: 048
  4. PREDNISOLONE [Suspect]
     Dosage: 100 MG, QD
  5. CYCLOPHOSPHAMIDE [Suspect]
     Indication: LYMPHOMA
  6. AMOXICILLIN/CLAVULANIC ACID [Concomitant]
     Dosage: 1.25 G, QD
  7. FLUCONAZOLE [Concomitant]
     Dosage: 400 MG, QD
  8. CEPHALEXIN [Concomitant]
     Dosage: 1.5 G, QD
     Route: 048
  9. CEFOTAXIME [Concomitant]
     Dosage: 2 G, TID
  10. AMIKACIN [Concomitant]
     Dosage: 750 MG, QD

REACTIONS (11)
  - Sepsis [Unknown]
  - Cardiac failure congestive [Unknown]
  - Deep vein thrombosis [Unknown]
  - Oral candidiasis [Unknown]
  - Pulmonary hypertension [Unknown]
  - Bacteraemia [Unknown]
  - Pyrexia [Unknown]
  - Somnolence [Unknown]
  - Actinomyces test positive [Unknown]
  - Cough [Unknown]
  - Neutrophil count abnormal [Unknown]
